FAERS Safety Report 7367670-X (Version None)
Quarter: 2011Q1

REPORT INFORMATION
  Report Type: 
  Country: None (occurrence: None)
  Receive Date: 20110322
  Receipt Date: 20110315
  Transmission Date: 20110831
  Serious: Yes (Other)
  Sender: FDA-Public Use
  Company Number: CA-PFIZER INC-2011018778

PATIENT
  Age: 30 Year
  Sex: Male
  Weight: 68.027 kg

DRUGS (9)
  1. TRUVADA [Concomitant]
     Indication: HIV INFECTION
     Dosage: 200 MG, 1X/DAY
     Route: 048
     Dates: start: 20090401
  2. CELEXA [Concomitant]
     Indication: DEPRESSION
     Dosage: 20 MG, 1X/DAY
     Route: 048
     Dates: start: 20090401
  3. REVATIO [Suspect]
     Indication: PULMONARY ARTERIAL HYPERTENSION
     Dosage: 20 MG, 3X/DAY
     Route: 048
     Dates: start: 20091101
  4. SULFATRIM [Concomitant]
     Indication: INFECTION PROPHYLAXIS
     Dosage: 600 MG, 3 TABLETS/WEEK
     Route: 048
     Dates: start: 20090401
  5. NORVIR [Concomitant]
     Indication: HIV INFECTION
     Dosage: 100 MG, 2X/DAY
     Route: 048
     Dates: start: 20090401
  6. ISENTRESS [Concomitant]
     Indication: HIV INFECTION
     Dosage: 400 MG, 2X/DAY
     Route: 048
     Dates: start: 20090401
  7. TRAZODONE [Concomitant]
     Indication: DEPRESSION
     Dosage: 50 MG, 1X/DAY
     Route: 048
     Dates: start: 20090401
  8. PREZISTA [Concomitant]
     Indication: HIV INFECTION
     Dosage: 600 MG, 2X/DAY
     Dates: start: 20090401
  9. PREZISTA [Concomitant]
     Indication: HEPATITIS B

REACTIONS (1)
  - VISUAL IMPAIRMENT [None]
